FAERS Safety Report 9868353 (Version 2)
Quarter: 2014Q1

REPORT INFORMATION
  Report Type: Spontaneous
  Country: US (occurrence: US)
  Receive Date: 20140204
  Receipt Date: 20140204
  Transmission Date: 20141002
  Serious: Yes (Hospitalization)
  Sender: FDA-Public Use
  Company Number: US-B.I. PHARMACEUTICALS,INC./RIDGEFIELD-2013-BI-30442BP

PATIENT
  Sex: Male
  Weight: 81.65 kg

DRUGS (14)
  1. PRADAXA [Suspect]
     Indication: ATRIAL FIBRILLATION
     Dosage: 300 MG
     Route: 048
     Dates: start: 20101127
  2. VERAPAMIL [Concomitant]
  3. NORVASC [Concomitant]
  4. HYZAAR [Concomitant]
  5. K-DUR [Concomitant]
  6. METOPROLOL [Concomitant]
  7. ISOSORBIDE [Concomitant]
  8. LASIX [Concomitant]
  9. CRESTOR [Concomitant]
  10. CLONIDINE [Concomitant]
  11. TERAZOSIN [Concomitant]
  12. ALLOPURINOL [Concomitant]
  13. GLIPIZIDE [Concomitant]
  14. METFORMIN [Concomitant]

REACTIONS (4)
  - Lower gastrointestinal haemorrhage [Unknown]
  - Haemorrhagic anaemia [Unknown]
  - Thrombocytopenia [Unknown]
  - Haemoptysis [Recovered/Resolved]
